FAERS Safety Report 10070393 (Version 1)
Quarter: 2014Q2

REPORT INFORMATION
  Report Type: Spontaneous
  Country: DE (occurrence: DE)
  Receive Date: 20140410
  Receipt Date: 20140410
  Transmission Date: 20141212
  Serious: Yes (Hospitalization)
  Sender: FDA-Public Use
  Company Number: DE-B.I. PHARMACEUTICALS,INC./RIDGEFIELD-2014-BI-16236GD

PATIENT
  Age: 81 Year
  Sex: Female

DRUGS (9)
  1. PRADAXA [Suspect]
     Indication: ATRIAL FIBRILLATION
     Dosage: 220 MG
     Route: 048
  2. PANTOPRAZOLE [Suspect]
     Indication: PRODUCT USED FOR UNKNOWN INDICATION
     Route: 065
  3. LERCANIDIPINE [Concomitant]
     Route: 065
  4. CLONIDINE [Concomitant]
     Route: 065
  5. METOPROLOL [Concomitant]
     Route: 065
  6. TRIAMTERENE [Concomitant]
     Route: 065
  7. HYDROCHLOROTHIAZIDE [Concomitant]
     Route: 065
  8. FUROSEMIDE [Concomitant]
     Route: 065
  9. ISOSORBIDE MONONITRATE [Concomitant]
     Route: 065

REACTIONS (1)
  - Cerebral artery embolism [Recovered/Resolved]
